FAERS Safety Report 10938508 (Version 2)
Quarter: 2015Q2

REPORT INFORMATION
  Report Type: Spontaneous
  Country: US (occurrence: US)
  Receive Date: 20150321
  Receipt Date: 20150525
  Transmission Date: 20150821
  Serious: No
  Sender: FDA-Public Use
  Company Number: US-JNJFOC-20140827016

PATIENT
  Sex: Male
  Weight: 92.53 kg

DRUGS (1)
  1. STELARA [Suspect]
     Active Substance: USTEKINUMAB
     Indication: PSORIASIS
     Dosage: ON WEEK 0, 4 AND THEN ONCE EVERY 12 WEEKS
     Route: 058
     Dates: start: 20140425, end: 20140827

REACTIONS (1)
  - Hyperhidrosis [Recovering/Resolving]

NARRATIVE: CASE EVENT DATE: 2014
